FAERS Safety Report 10286514 (Version 3)
Quarter: 2014Q4

REPORT INFORMATION
  Report Type: Spontaneous
  Country: IT (occurrence: IT)
  Receive Date: 20140709
  Receipt Date: 20141017
  Transmission Date: 20150528
  Serious: Yes (Hospitalization)
  Sender: FDA-Public Use
  Company Number: IT-SA-2014SA077243

PATIENT
  Age: 61 Year
  Sex: Male

DRUGS (15)
  1. DENIBAN [Suspect]
     Active Substance: AMISULPRIDE
     Indication: INTENTIONAL SELF-INJURY
     Route: 048
     Dates: start: 20140423, end: 20140423
  2. METFORMIN [Suspect]
     Active Substance: METFORMIN HYDROCHLORIDE
     Indication: INTENTIONAL SELF-INJURY
     Route: 048
     Dates: start: 20140423, end: 20140423
  3. CITALOPRAM [Suspect]
     Active Substance: CITALOPRAM HYDROBROMIDE
     Indication: INTENTIONAL SELF-INJURY
     Route: 048
     Dates: start: 20140423, end: 20140423
  4. CITALOPRAM [Suspect]
     Active Substance: CITALOPRAM HYDROBROMIDE
     Indication: INTENTIONAL SELF-INJURY
     Route: 048
  5. DENIBAN [Suspect]
     Active Substance: AMISULPRIDE
     Indication: INTENTIONAL SELF-INJURY
     Route: 065
  6. METFORMIN [Suspect]
     Active Substance: METFORMIN HYDROCHLORIDE
     Indication: INTENTIONAL SELF-INJURY
     Route: 065
  7. SIMVASTATIN. [Suspect]
     Active Substance: SIMVASTATIN
     Indication: INTENTIONAL SELF-INJURY
     Route: 065
  8. ZOLPIDEM TARTRATE. [Suspect]
     Active Substance: ZOLPIDEM TARTRATE
     Indication: INTENTIONAL SELF-INJURY
     Route: 048
     Dates: start: 20140423, end: 20140423
  9. ZEFFIX [Suspect]
     Active Substance: LAMIVUDINE
     Indication: INTENTIONAL SELF-INJURY
     Route: 065
  10. LANSOPRAZOLE. [Suspect]
     Active Substance: LANSOPRAZOLE
     Indication: INTENTIONAL SELF-INJURY
     Route: 065
  11. VASORETIC [Suspect]
     Active Substance: ENALAPRIL MALEATE\HYDROCHLOROTHIAZIDE
     Indication: INTENTIONAL SELF-INJURY
     Route: 048
     Dates: start: 20140423, end: 20140423
  12. ZEFFIX [Suspect]
     Active Substance: LAMIVUDINE
     Indication: INTENTIONAL SELF-INJURY
     Route: 048
     Dates: start: 20140423, end: 20140423
  13. LANSOPRAZOLE. [Suspect]
     Active Substance: LANSOPRAZOLE
     Indication: INTENTIONAL SELF-INJURY
     Route: 048
     Dates: start: 20140423, end: 20140423
  14. SIMVASTATIN. [Suspect]
     Active Substance: SIMVASTATIN
     Indication: INTENTIONAL SELF-INJURY
     Route: 048
     Dates: start: 20140423, end: 20140423
  15. VASORETIC [Suspect]
     Active Substance: ENALAPRIL MALEATE\HYDROCHLOROTHIAZIDE
     Indication: INTENTIONAL SELF-INJURY
     Route: 065

REACTIONS (5)
  - Hypotension [Recovering/Resolving]
  - Depressed level of consciousness [Recovering/Resolving]
  - Metabolic acidosis [Recovering/Resolving]
  - Intentional self-injury [Unknown]
  - Conduction disorder [Recovering/Resolving]

NARRATIVE: CASE EVENT DATE: 20140423
